FAERS Safety Report 24075161 (Version 2)
Quarter: 2024Q3

REPORT INFORMATION
  Report Type: Report from Study
  Country: ZA (occurrence: ZA)
  Receive Date: 20240710
  Receipt Date: 20240711
  Transmission Date: 20241017
  Serious: Yes (Death)
  Sender: ABBVIE
  Company Number: ZA-ABBOTT-2024A-1383715

PATIENT
  Age: 74 Year
  Sex: Male

DRUGS (22)
  1. FENOFIBRATE [Suspect]
     Active Substance: FENOFIBRATE
     Indication: Blood cholesterol abnormal
     Dosage: 200 MG, TAKE A TABLET IN THE MORNING
     Route: 048
  2. OMEPRAZOLE [Concomitant]
     Active Substance: OMEPRAZOLE
     Indication: Gastrooesophageal reflux disease
     Dosage: 40 MG TAKE A CAPSULE IN THE MORNING
     Route: 048
  3. JARDIANCE [Concomitant]
     Active Substance: EMPAGLIFLOZIN
     Indication: Diabetes mellitus
     Dosage: 25 MG TAKE A TABLET IN THE MORNING
     Route: 048
  4. PERINDOPRIL [Concomitant]
     Active Substance: PERINDOPRIL
     Indication: Hypertension
     Dosage: 2.5/0.625 MG TAKE A TABLET IN THE MORNINGS
     Route: 048
  5. BETAHISTINE [Concomitant]
     Active Substance: BETAHISTINE
     Indication: Vertigo
     Dosage: 24 MG TAKE ONE TABLET TWICE A DAY
     Route: 048
  6. Uromax [Concomitant]
     Indication: Prostatomegaly
     Dosage: 0.4 MG TAKE ONE CAPSULE DAILY
     Route: 048
  7. BETAHISTINE HYDROCHLORIDE [Concomitant]
     Active Substance: BETAHISTINE HYDROCHLORIDE
     Indication: Vertigo
     Dosage: 24 MG TAKE ONE TABLET TWICE A DAY
     Route: 048
  8. Mibitez [Concomitant]
     Indication: Hyperlipidaemia
     Dosage: 10 MG TAKE A TABLET IN THE MORNING
     Route: 048
  9. NEUROBION [Concomitant]
     Active Substance: CYANOCOBALAMIN\PYRIDOXINE\THIAMINE
     Indication: Product used for unknown indication
     Dosage: TAKE A TABLET IN THE MORNING
     Route: 048
  10. Optisulin [Concomitant]
     Indication: Diabetes mellitus
     Dosage: 100 IU 19 UNITS IN THE MORNING
     Route: 058
  11. PERINDOPRIL ERBUMINE [Concomitant]
     Active Substance: PERINDOPRIL ERBUMINE
     Indication: Hypertension
     Dosage: 2.5/0.625 MG TAKE A TABLET IN THE MORNINGS
     Route: 048
  12. Solestan [Concomitant]
     Indication: Hypertonic bladder
     Dosage: 10 MG TAKE ONE TABLET DAILY
     Route: 048
  13. Lennon vitamin b12 [Concomitant]
     Indication: Product used for unknown indication
     Dosage: 1000 MCG EVERY 6 WEEKS
     Route: 058
  14. BUTYLSCOPOLAMINE BROMIDE\METAMIZOLE SODIUM [Concomitant]
     Active Substance: BUTYLSCOPOLAMINE BROMIDE\METAMIZOLE SODIUM
     Indication: Product used for unknown indication
     Dosage: TAKE ONE TABLET THREE TIMES A DAY
     Route: 048
  15. TAMSULOSIN HYDROCHLORIDE [Concomitant]
     Active Substance: TAMSULOSIN HYDROCHLORIDE
     Indication: Benign prostatic hyperplasia
     Dosage: 0.4 MG TAKE ONE CAPSULE DAILY
     Route: 048
  16. CLOBAZAM [Concomitant]
     Active Substance: CLOBAZAM
     Indication: Anxiety
     Dosage: 5 MG TAKE A CAPSULE AT NIGHT
     Route: 048
  17. Trezecol [Concomitant]
     Indication: Hyperlipidaemia
     Dosage: 10 MG TAKE ONE TABLET IN THE MORNING
     Route: 048
  18. BETAHISTINE HYDROCHLORIDE [Suspect]
     Active Substance: BETAHISTINE HYDROCHLORIDE
     Indication: Vertigo
     Dosage: 24 MG, TAKE ONE TABLET TWICE A DAY
     Route: 048
  19. CIPLOXX [Concomitant]
     Indication: Product used for unknown indication
     Dosage: 500 MG TAKE ONE TABLET TWICE A DAY
     Route: 048
  20. ROSUVASTATIN CALCIUM [Concomitant]
     Active Substance: ROSUVASTATIN CALCIUM
     Indication: Blood cholesterol abnormal
     Dosage: 40 MG TAKE ONE TABLET DAILY
     Route: 048
  21. METFORMIN HYDROCHLORIDE\VILDAGLIPTIN [Concomitant]
     Active Substance: METFORMIN HYDROCHLORIDE\VILDAGLIPTIN
     Indication: Diabetes mellitus
     Dosage: 50/1000 MG TAKE ONE TABLET TWICE A DAY
     Route: 048
  22. ASPIRIN [Concomitant]
     Active Substance: ASPIRIN
     Indication: Blood disorder prophylaxis
     Dosage: 100 MG TAKE A TABLET IN THE MORNING
     Route: 048

REACTIONS (1)
  - Organ failure [Fatal]
